FAERS Safety Report 8099974 (Version 3)
Quarter: 2013Q1

REPORT INFORMATION
  Report Type: Report from Study
  Country: US (occurrence: US)
  Receive Date: 20110822
  Receipt Date: 20130114
  Transmission Date: 20140127
  Serious: Yes (Life-Threatening, Hospitalization, Other)
  Sender: FDA-Public Use
  Company Number: PHHO2011US13897

PATIENT
  Age: 32 Year
  Sex: Female
  Weight: 134.69 kg

DRUGS (5)
  1. CERTICAN [Suspect]
     Indication: RENAL TRANSPLANT
     Dosage: 1.5 MG, BID
     Route: 048
     Dates: start: 20110808, end: 20120218
  2. CERTICAN [Suspect]
     Dosage: 0.5 MG, BID
     Route: 048
     Dates: start: 20120229, end: 20120430
  3. TACROLIMUS [Concomitant]
     Indication: RENAL TRANSPLANT
  4. WARFARIN [Concomitant]
     Indication: DEEP VEIN THROMBOSIS
     Dosage: 7.5 MG, QD
     Dates: start: 20110821, end: 20120430
  5. LOPRESSOR [Concomitant]
     Indication: BLOOD PRESSURE
     Dosage: 25 MG, BID
     Dates: start: 20110810

REACTIONS (3)
  - Respiratory failure [Recovered/Resolved]
  - Pneumonitis [Recovering/Resolving]
  - Pulmonary embolism [Recovered/Resolved]
